FAERS Safety Report 8507725-7 (Version None)
Quarter: 2012Q3

REPORT INFORMATION
  Report Type: 
  Country: None (occurrence: None)
  Receive Date: 20120709
  Receipt Date: 20120709
  Transmission Date: 20120928
  Serious: Yes (Hospitalization)
  Sender: FDA-Public Use
  Company Number: None

PATIENT
  Sex: Female
  Weight: 63.5036 kg

DRUGS (1)
  1. CITALOPRAM HYDROBROMIDE [Suspect]
     Indication: DEPRESSION
     Dosage: 2 TABLETS ONCE DAILY PO
     Route: 048
     Dates: start: 20120601, end: 20120706

REACTIONS (5)
  - TREMOR [None]
  - AGITATION [None]
  - RESTLESSNESS [None]
  - GASTROINTESTINAL SOUNDS ABNORMAL [None]
  - DYSKINESIA [None]
